FAERS Safety Report 5377500-3 (Version None)
Quarter: 2007Q3

REPORT INFORMATION
  Report Type: 
  Country: None (occurrence: None)
  Receive Date: 20070703
  Receipt Date: 20070620
  Transmission Date: 20080115
  Serious: Yes (Hospitalization)
  Sender: FDA-Public Use
  Company Number: HR-ELI_LILLY_AND_COMPANY-HR200706005190

PATIENT
  Age: 51 Year
  Sex: Male
  Weight: 97 kg

DRUGS (7)
  1. HUMULIN R [Suspect]
     Indication: DIABETES MELLITUS
     Dosage: 28 U, UNK
     Route: 058
     Dates: start: 20060103
  2. *INSULIN GLARGINE [Suspect]
     Indication: DIABETES MELLITUS
     Dosage: 32 U, UNK
     Route: 058
     Dates: start: 20060103
  3. ATORVASTATIN CALCIUM [Concomitant]
     Dates: start: 20060110
  4. LEXILLIUM [Concomitant]
     Dates: start: 20060405
  5. ATHYRAZOL [Concomitant]
     Dates: start: 20060722
  6. PROPRANOLOL [Concomitant]
     Dosage: 40 MG, UNK
     Dates: start: 20060727
  7. VITAMIN B COMPLEX CAP [Concomitant]
     Dates: start: 20070215

REACTIONS (1)
  - RIB FRACTURE [None]
